FAERS Safety Report 17028668 (Version 1)
Quarter: 2019Q4

REPORT INFORMATION
  Report Type: Spontaneous
  Country: EG (occurrence: EG)
  Receive Date: 20191113
  Receipt Date: 20191113
  Transmission Date: 20200122
  Serious: Yes (Other)
  Sender: FDA-Public Use
  Company Number: ALC2019EG001424

PATIENT

DRUGS (1)
  1. SYSTANE ULTRA [Suspect]
     Active Substance: POLYETHYLENE GLYCOL 400\PROPYLENE GLYCOL
     Indication: PRODUCT USED FOR UNKNOWN INDICATION
     Dosage: UNK
     Route: 065

REACTIONS (7)
  - Punctate keratitis [Unknown]
  - Ocular hyperaemia [Unknown]
  - Counterfeit product administered [Unknown]
  - Lacrimation increased [Unknown]
  - Manufacturing issue [Unknown]
  - Product storage error [Unknown]
  - Eye pruritus [Unknown]

NARRATIVE: CASE EVENT DATE: 20191020
